FAERS Safety Report 7330004-0 (Version None)
Quarter: 2011Q1

REPORT INFORMATION
  Report Type: 
  Country: None (occurrence: None)
  Receive Date: 20110303
  Receipt Date: 20110217
  Transmission Date: 20110831
  Serious: Yes (Hospitalization, Other)
  Sender: FDA-Public Use
  Company Number: CO-GENENTECH-314309

PATIENT
  Sex: Male

DRUGS (2)
  1. TOBRAMYCIN [Concomitant]
     Indication: CYSTIC FIBROSIS
     Dosage: UNK
  2. PULMOZYME [Suspect]
     Indication: CYSTIC FIBROSIS
     Dosage: UNK
     Route: 055
     Dates: start: 20101029

REACTIONS (3)
  - DEPRESSION [None]
  - COUGH [None]
  - ABDOMINAL PAIN [None]
